FAERS Safety Report 7638760-9 (Version None)
Quarter: 2011Q3

REPORT INFORMATION
  Report Type: 
  Country: None (occurrence: None)
  Receive Date: 20110727
  Receipt Date: 20110719
  Transmission Date: 20111222
  Serious: Yes (Hospitalization, Other)
  Sender: FDA-Public Use
  Company Number: US-ROCHE-789293

PATIENT
  Sex: Male

DRUGS (1)
  1. AVASTIN [Suspect]
     Indication: GLIOBLASTOMA MULTIFORME
     Dosage: START DATE REPORTED AS SIX MONTHS AGO LAST DOSE PRIOR TO SAE REPORTED AS 8 DAYS AGO
     Route: 042

REACTIONS (4)
  - PYREXIA [None]
  - CONFUSIONAL STATE [None]
  - LETHARGY [None]
  - TREMOR [None]
